FAERS Safety Report 5012241-3 (Version None)
Quarter: 2006Q2

REPORT INFORMATION
  Report Type: 
  Country: None (occurrence: None)
  Receive Date: 20060524
  Receipt Date: 20060516
  Transmission Date: 20061013
  Serious: Yes (Hospitalization, Other)
  Sender: FDA-Public Use
  Company Number: 2006023115

PATIENT
  Sex: Male

DRUGS (8)
  1. LYRICA [Suspect]
     Indication: DIABETIC NEUROPATHY
     Dates: start: 20060111, end: 20060118
  2. COREG [Concomitant]
  3. LANOXIN [Concomitant]
  4. LOTENSIN [Concomitant]
  5. LASIX [Concomitant]
  6. KLOR-CON [Concomitant]
  7. ZAROXOLYN [Concomitant]
  8. HUMULIN 70/30 [Concomitant]

REACTIONS (4)
  - CARDIAC FAILURE CONGESTIVE [None]
  - EJECTION FRACTION DECREASED [None]
  - OEDEMA [None]
  - WEIGHT INCREASED [None]
